FAERS Safety Report 13544281 (Version 1)
Quarter: 2017Q2

REPORT INFORMATION
  Report Type: Spontaneous
  Country: US (occurrence: US)
  Receive Date: 20170515
  Receipt Date: 20170515
  Transmission Date: 20170830
  Serious: Yes (Hospitalization)
  Sender: FDA-Public Use
  Company Number: US-TARO PHARMACEUTICALS USA.,INC-2017SUN00152

PATIENT
  Age: 7 Year
  Sex: Female

DRUGS (5)
  1. CLOBAZAM [Interacting]
     Active Substance: CLOBAZAM
     Indication: SEIZURE
     Dosage: 15 MG, BID
     Route: 048
  2. LAMOTRIGINE. [Suspect]
     Active Substance: LAMOTRIGINE
     Indication: SEIZURE
     Dosage: 100 MG, BID
     Route: 048
  3. HEMP OIL EXTRACT [Interacting]
     Active Substance: CANNABIS SATIVA SEED OIL
     Indication: SEIZURE
     Dosage: UNK
     Route: 065
  4. CLONAZEPAM. [Interacting]
     Active Substance: CLONAZEPAM
     Indication: SEIZURE
     Dosage: 0.5 MG, ONCE DAILY
     Route: 048
  5. VALPROATE [Interacting]
     Active Substance: VALPROIC ACID
     Indication: SEIZURE
     Dosage: 250 MG, BID
     Route: 048

REACTIONS (6)
  - Dysstasia [Unknown]
  - Gait disturbance [Recovered/Resolved]
  - Anticonvulsant drug level above therapeutic [Unknown]
  - Somnolence [Recovered/Resolved]
  - Drug interaction [Unknown]
  - Seizure [Recovered/Resolved]
